FAERS Safety Report 8808006 (Version 5)
Quarter: 2013Q1

REPORT INFORMATION
  Report Type: Report from Study
  Country: US (occurrence: US)
  Receive Date: 20120925
  Receipt Date: 20130305
  Transmission Date: 20140127
  Serious: Yes (Hospitalization, Other)
  Sender: FDA-Public Use
  Company Number: US-JNJFOC-20120908770

PATIENT
  Age: 13 Year
  Sex: Female
  Weight: 38.6 kg

DRUGS (4)
  1. REMICADE [Suspect]
     Indication: COLITIS ULCERATIVE
     Route: 042
     Dates: start: 20100712
  2. CIMZIA [Concomitant]
     Dates: start: 20100315
  3. VANCOMYCIN [Concomitant]
  4. MEROPENEM [Concomitant]

REACTIONS (2)
  - Colitis ulcerative [Recovered/Resolved]
  - Hypotension [Recovered/Resolved]
